FAERS Safety Report 25432030 (Version 1)
Quarter: 2025Q2

REPORT INFORMATION
  Report Type: Spontaneous
  Country: BE (occurrence: BE)
  Receive Date: 20250613
  Receipt Date: 20250613
  Transmission Date: 20250717
  Serious: Yes (Other)
  Sender: TEVA
  Company Number: None

PATIENT
  Age: 26 Year
  Sex: Male
  Weight: 70 kg

DRUGS (6)
  1. CARBOPLATIN [Suspect]
     Active Substance: CARBOPLATIN
     Indication: Osteosarcoma
     Route: 065
     Dates: start: 201704, end: 201706
  2. DOXORUBICIN [Suspect]
     Active Substance: DOXORUBICIN
     Indication: Osteosarcoma
     Route: 065
  3. IFOSFAMIDE [Suspect]
     Active Substance: IFOSFAMIDE
     Indication: Metastases to lung
     Route: 065
     Dates: start: 201610, end: 201702
  4. METHOTREXATE [Suspect]
     Active Substance: METHOTREXATE
     Indication: Metastases to lung
     Route: 065
     Dates: start: 201610, end: 201702
  5. CISPLATIN [Suspect]
     Active Substance: CISPLATIN
     Indication: Osteosarcoma
     Route: 065
  6. ETOPOSIDE [Suspect]
     Active Substance: ETOPOSIDE
     Indication: Osteosarcoma
     Route: 065
     Dates: start: 201704, end: 201706

REACTIONS (3)
  - Malignant neoplasm progression [Unknown]
  - Product use in unapproved indication [Unknown]
  - Intentional product use issue [Unknown]

NARRATIVE: CASE EVENT DATE: 20170101
